FAERS Safety Report 10421936 (Version 1)
Quarter: 2014Q3

REPORT INFORMATION
  Report Type: Report from Study
  Country: IN (occurrence: IN)
  Receive Date: 20140901
  Receipt Date: 20140901
  Transmission Date: 20150326
  Serious: Yes (Hospitalization)
  Sender: FDA-Public Use
  Company Number: PHHY2014IN105727

PATIENT
  Age: 77 Year
  Sex: Female

DRUGS (7)
  1. ACLASTA [Suspect]
     Active Substance: ZOLEDRONIC ACID
     Indication: OSTEOPOROSIS
     Dosage: 5 MG, UNK
     Route: 042
     Dates: start: 20130810
  2. VERTIN//BETAHISTINE HYDROCHLORIDE [Suspect]
     Active Substance: BETAHISTINE HYDROCHLORIDE
     Dosage: UNK UKN, BID(WAS TAKEN TWICE DAILY BEFORE OPERATION, WHILE IT REDUCED TO ONCE DAILY POST SURGERY)
     Route: 048
  3. VERTIN//BETAHISTINE HYDROCHLORIDE [Suspect]
     Active Substance: BETAHISTINE HYDROCHLORIDE
     Dosage: UNK UKN, QD (BEFORE FOOD IN EVENING)
     Route: 048
  4. OMEPRAZOLE. [Concomitant]
     Active Substance: OMEPRAZOLE
     Dosage: 20 MG, (TAKEN TWICE DAILY BEFORE OPERATION, WHILE IT REDUCED TO ONCE DAILY POST SURGERY)
  5. GEMCAL [Concomitant]
     Active Substance: CALCIUM
     Indication: CALCIUM DEFICIENCY
     Dosage: 75 MG, UNK
  6. AMLODIPINE [Concomitant]
     Active Substance: AMLODIPINE BESYLATE
     Dosage: UNK UKN, BID (TAKEN TWICE DAILY BEFORE OPERATION, WHILE IT REDUCED TO ONCE DAILY POST SURGERY)
     Route: 048
  7. AMLODIPINE [Concomitant]
     Active Substance: AMLODIPINE BESYLATE
     Dosage: UNK UKN, (BEFORE FOOD IN MORNING AND EVENING)
     Route: 048

REACTIONS (10)
  - Gastrointestinal injury [Recovering/Resolving]
  - Blood pressure increased [Unknown]
  - Dyspnoea [Recovering/Resolving]
  - Hernia [Recovering/Resolving]
  - Gastritis [Recovering/Resolving]
  - Gait disturbance [Recovering/Resolving]
  - Gastrointestinal pain [Recovering/Resolving]
  - Asthma [Recovering/Resolving]
  - Gastrointestinal disorder [Recovering/Resolving]
  - Dizziness [Recovering/Resolving]
